FAERS Safety Report 19239672 (Version 1)
Quarter: 2021Q2

REPORT INFORMATION
  Report Type: Spontaneous
  Country: US (occurrence: US)
  Receive Date: 20210511
  Receipt Date: 20210511
  Transmission Date: 20210717
  Serious: Yes (Hospitalization, Other)
  Sender: FDA-Public Use
  Company Number: US-AUROBINDO-AUR-APL-2021-018925

PATIENT
  Age: 73 Year
  Sex: Male

DRUGS (1)
  1. DEXAMETHASONE. [Suspect]
     Active Substance: DEXAMETHASONE
     Indication: HAEMOPHAGOCYTIC LYMPHOHISTIOCYTOSIS
     Dosage: UNK, HIGH DOSE
     Route: 065

REACTIONS (5)
  - Tumour lysis syndrome [Unknown]
  - Blood uric acid increased [Unknown]
  - Hyperkalaemia [Unknown]
  - Hyperphosphataemia [Unknown]
  - Renal failure [Unknown]
